FAERS Safety Report 5091928-0 (Version None)
Quarter: 2006Q3

REPORT INFORMATION
  Report Type: 
  Country: None (occurrence: None)
  Receive Date: 20060825
  Receipt Date: 20060818
  Transmission Date: 20061208
  Serious: Yes (Disabling)
  Sender: FDA-Public Use
  Company Number: 2006SI000196

PATIENT
  Age: 46 Year
  Sex: Female

DRUGS (3)
  1. ACITRETIN [Suspect]
     Indication: PSORIASIS
     Dosage: 20 MG; BIW; PO; 10 MG; PO; 10 MG; PO
     Route: 048
     Dates: start: 20020101, end: 20060301
  2. ACITRETIN [Suspect]
     Indication: PSORIASIS
     Dosage: 20 MG; BIW; PO; 10 MG; PO; 10 MG; PO
     Route: 048
     Dates: start: 20020101, end: 20060301
  3. ACITRETIN [Suspect]
     Indication: PSORIASIS
     Dosage: 20 MG; BIW; PO; 10 MG; PO; 10 MG; PO
     Route: 048
     Dates: start: 20060701

REACTIONS (2)
  - BREAST NEOPLASM [None]
  - IMPAIRED WORK ABILITY [None]
